FAERS Safety Report 19869543 (Version 4)
Quarter: 2022Q4

REPORT INFORMATION
  Report Type: Spontaneous
  Country: FR (occurrence: FR)
  Receive Date: 20210923
  Receipt Date: 20221109
  Transmission Date: 20230113
  Serious: Yes (Death, Other)
  Sender: FDA-Public Use
  Company Number: FR-TAKEDA-2021TEU008088

PATIENT
  Age: 79 Year
  Sex: Male

DRUGS (2)
  1. ENANTONE LP [Suspect]
     Active Substance: LEUPROLIDE ACETATE
     Indication: Prostate cancer recurrent
     Dosage: UNK
     Route: 065
     Dates: start: 202102, end: 2021
  2. AMLODIPINE [Concomitant]
     Active Substance: AMLODIPINE BESYLATE
     Indication: Hypertension
     Dosage: UNK
     Dates: start: 2021

REACTIONS (8)
  - Fatigue [Unknown]
  - Death [Fatal]
  - Depression [Recovering/Resolving]
  - Anxiety [Unknown]
  - Gait disturbance [Recovering/Resolving]
  - Insomnia [Unknown]
  - Thrombosis [Unknown]
  - Myalgia [Unknown]

NARRATIVE: CASE EVENT DATE: 20210101
